FAERS Safety Report 7911307-5 (Version None)
Quarter: 2011Q4

REPORT INFORMATION
  Report Type: 
  Country: None (occurrence: None)
  Receive Date: 20111114
  Receipt Date: 20111107
  Transmission Date: 20120403
  Serious: Yes (Other)
  Sender: FDA-Public Use
  Company Number: US-SANOFI-AVENTIS-2011SA070434

PATIENT
  Age: 66 Year
  Sex: Male

DRUGS (1)
  1. LANTUS [Suspect]
     Dosage: DOSE:80 UNIT(S)
     Route: 058
     Dates: start: 20000101, end: 20111024

REACTIONS (7)
  - NERVOUSNESS [None]
  - LEG AMPUTATION [None]
  - HYPOGLYCAEMIA [None]
  - VISUAL IMPAIRMENT [None]
  - BLOOD GLUCOSE INCREASED [None]
  - DISORIENTATION [None]
  - COLD SWEAT [None]
